FAERS Safety Report 5496642-5 (Version None)
Quarter: 2007Q4

REPORT INFORMATION
  Report Type: 
  Country: None (occurrence: None)
  Receive Date: 20071023
  Receipt Date: 20071023
  Transmission Date: 20080405
  Serious: Yes (Life-Threatening, Hospitalization)
  Sender: FDA-Public Use
  Company Number: None

PATIENT
  Age: 20 Year
  Sex: Male

DRUGS (2)
  1. ISONIAZID [Suspect]
     Indication: TUBERCULOSIS SKIN TEST POSITIVE
     Dosage: 300MG  DAILY  PO
     Route: 048
     Dates: start: 20070625, end: 20070713
  2. RIFAMPIN [Suspect]
     Indication: TUBERCULOSIS SKIN TEST POSITIVE
     Dosage: 600MG  DAILY  PO
     Route: 048
     Dates: start: 20070713, end: 20071007

REACTIONS (17)
  - ARTHRALGIA [None]
  - CONFUSIONAL STATE [None]
  - FEELING JITTERY [None]
  - HALLUCINATION, AUDITORY [None]
  - HEADACHE [None]
  - LIMB TRAUMATIC AMPUTATION [None]
  - MYALGIA [None]
  - NERVOUSNESS [None]
  - PARAESTHESIA [None]
  - PRESSURE OF SPEECH [None]
  - PSYCHOMOTOR HYPERACTIVITY [None]
  - RASH [None]
  - SELF INJURIOUS BEHAVIOUR [None]
  - SOMNOLENCE [None]
  - THROMBOCYTOPENIC PURPURA [None]
  - TYPE III IMMUNE COMPLEX MEDIATED REACTION [None]
  - VISUAL DISTURBANCE [None]
